FAERS Safety Report 14689375 (Version 1)
Quarter: 2018Q1

REPORT INFORMATION
  Report Type: Spontaneous
  Country: BR (occurrence: BR)
  Receive Date: 20180328
  Receipt Date: 20180328
  Transmission Date: 20180509
  Serious: Yes (Hospitalization, Other)
  Sender: FDA-Public Use
  Company Number: BR-PFIZER INC-2018113800

PATIENT
  Age: 60 Year
  Sex: Female

DRUGS (1)
  1. EFFEXOR XR [Suspect]
     Active Substance: VENLAFAXINE HYDROCHLORIDE
     Indication: DEPRESSION
     Dosage: 75 MG, DAILY (1 CAPSULE DAILY)
     Dates: start: 2003

REACTIONS (11)
  - Upper limb fracture [Recovered/Resolved]
  - Syncope [Recovered/Resolved]
  - Dependence [Not Recovered/Not Resolved]
  - Fall [Recovered/Resolved]
  - Panic disorder [Recovered/Resolved]
  - Drug ineffective [Not Recovered/Not Resolved]
  - Laceration [Recovered/Resolved]
  - Feeling of despair [Unknown]
  - Injury [Recovered/Resolved]
  - Headache [Not Recovered/Not Resolved]
  - Impaired reasoning [Not Recovered/Not Resolved]

NARRATIVE: CASE EVENT DATE: 2011
